FAERS Safety Report 25539132 (Version 1)
Quarter: 2025Q3

REPORT INFORMATION
  Report Type: Spontaneous
  Country: GB (occurrence: None)
  Receive Date: 20250709
  Receipt Date: 20250709
  Transmission Date: 20251020
  Serious: Yes (Life-Threatening, Disabling, Other)
  Sender: FDA-CTU
  Company Number: None

PATIENT
  Age: 39 Year
  Sex: Male

DRUGS (2)
  1. ZOLOFT [Suspect]
     Active Substance: SERTRALINE HYDROCHLORIDE
     Indication: Depression
     Dates: start: 20150601, end: 20240601
  2. Zoloft 50 mg [Concomitant]

REACTIONS (16)
  - Fatigue [None]
  - Therapy cessation [None]
  - Intrusive thoughts [None]
  - Panic attack [None]
  - Suicidal ideation [None]
  - Sexual dysfunction [None]
  - Anxiety [None]
  - Fear [None]
  - Anhedonia [None]
  - Tinnitus [None]
  - Eating disorder [None]
  - Headache [None]
  - Delusion [None]
  - Somnolence [None]
  - Loss of personal independence in daily activities [None]
  - Withdrawal syndrome [None]

NARRATIVE: CASE EVENT DATE: 20240601
